FAERS Safety Report 19921582 (Version 3)
Quarter: 2021Q4

REPORT INFORMATION
  Report Type: Spontaneous
  Country: JP (occurrence: JP)
  Receive Date: 20211006
  Receipt Date: 20211224
  Transmission Date: 20220304
  Serious: Yes (Other)
  Sender: FDA-Public Use
  Company Number: JP-NBI-S202100286BIPI

PATIENT
  Age: 87 Year
  Sex: Male

DRUGS (2)
  1. LINAGLIPTIN [Suspect]
     Active Substance: LINAGLIPTIN
     Indication: Diabetes mellitus
     Route: 048
  2. ALOGLIPTIN BENZOATE [Suspect]
     Active Substance: ALOGLIPTIN BENZOATE
     Indication: Diabetes mellitus
     Route: 048

REACTIONS (1)
  - Lung disorder [Recovered/Resolved]
